FAERS Safety Report 5533931-X (Version None)
Quarter: 2007Q4

REPORT INFORMATION
  Report Type: 
  Country: None (occurrence: None)
  Receive Date: 20071129
  Receipt Date: 20071114
  Transmission Date: 20080405
  Serious: Yes (Hospitalization, Other)
  Sender: FDA-Public Use
  Company Number: 2007JP005218

PATIENT
  Age: 8 Year
  Sex: Female

DRUGS (3)
  1. PROGRAF [Suspect]
     Indication: RENAL TRANSPLANT
  2. CELLCEPT [Concomitant]
  3. MEDROL [Concomitant]

REACTIONS (3)
  - BRONCHITIS [None]
  - LEIOMYOSARCOMA [None]
  - TREATMENT RELATED SECONDARY MALIGNANCY [None]
